FAERS Safety Report 23733270 (Version 2)
Quarter: 2024Q2

REPORT INFORMATION
  Report Type: Spontaneous
  Country: CA (occurrence: CA)
  Receive Date: 20240411
  Receipt Date: 20240416
  Transmission Date: 20240716
  Serious: Yes (Other)
  Sender: FDA-Public Use
  Company Number: CA-PFIZER INC-202400083543

PATIENT
  Age: 48 Year
  Sex: Male

DRUGS (24)
  1. HYDROMORPHONE HYDROCHLORIDE [Suspect]
     Active Substance: HYDROMORPHONE HYDROCHLORIDE
     Dosage: UNK
  2. LIDOCAINE HYDROCHLORIDE [Suspect]
     Active Substance: LIDOCAINE HYDROCHLORIDE
     Dosage: UNK
  3. LORAZEPAM [Suspect]
     Active Substance: LORAZEPAM
     Dosage: UNK
  4. POTASSIUM CHLORIDE [Suspect]
     Active Substance: POTASSIUM CHLORIDE
     Dosage: UNK
     Route: 065
  5. PENTAMIDINE ISETHIONATE [Suspect]
     Active Substance: PENTAMIDINE ISETHIONATE
     Dosage: UNK
     Route: 030
  6. CRESEMBA [Suspect]
     Active Substance: ISAVUCONAZONIUM SULFATE
     Dosage: UNK
  7. ALLOPURINOL [Suspect]
     Active Substance: ALLOPURINOL
     Dosage: UNK
  8. AMOXICILLIN\CLAVULANATE POTASSIUM [Suspect]
     Active Substance: AMOXICILLIN\CLAVULANATE POTASSIUM
     Dosage: UNK
  9. BISACODYL [Suspect]
     Active Substance: BISACODYL
     Dosage: UNK
  10. CHOLECALCIFEROL [Suspect]
     Active Substance: CHOLECALCIFEROL
     Dosage: UNK
  11. CIPROFLOXACIN HYDROCHLORIDE\DEXAMETHASONE [Suspect]
     Active Substance: CIPROFLOXACIN HYDROCHLORIDE\DEXAMETHASONE
     Dosage: UNK
  12. DIPHENHYDRAMINE [Suspect]
     Active Substance: DIPHENHYDRAMINE
     Dosage: UNK
  13. FAMCICLOVIR [Suspect]
     Active Substance: FAMCICLOVIR
     Dosage: UNK
  14. FUROSEMIDE [Suspect]
     Active Substance: FUROSEMIDE
     Dosage: UNK
  15. HYDROXYUREA [Suspect]
     Active Substance: HYDROXYUREA
     Dosage: UNK
  16. LACTULOSE [Suspect]
     Active Substance: LACTULOSE
     Dosage: UNK
  17. MAGNESIUM GLUCONATE [Suspect]
     Active Substance: MAGNESIUM GLUCONATE
     Dosage: UNK
  18. METOPROLOL [Suspect]
     Active Substance: METOPROLOL
     Dosage: UNK
  19. MINERAL OIL [Suspect]
     Active Substance: MINERAL OIL
     Dosage: UNK
     Route: 048
  20. NYSTATIN [Suspect]
     Active Substance: NYSTATIN
     Dosage: UNK
  21. PANTOPRAZOLE SODIUM ANHYDROUS [Suspect]
     Active Substance: PANTOPRAZOLE SODIUM ANHYDROUS
     Dosage: UNK
  22. POLYETHYLENE GLYCOLS [Suspect]
     Active Substance: POLYETHYLENE GLYCOLS
     Dosage: UNK
  23. RAMIPRIL [Suspect]
     Active Substance: RAMIPRIL
     Dosage: UNK
  24. SENNOSIDES [Suspect]
     Active Substance: SENNOSIDES
     Dosage: UNK

REACTIONS (1)
  - Febrile neutropenia [Unknown]
